FAERS Safety Report 6299468-8 (Version None)
Quarter: 2009Q3

REPORT INFORMATION
  Report Type: 
  Country: None (occurrence: None)
  Receive Date: 20090806
  Receipt Date: 20090730
  Transmission Date: 20100115
  Serious: Yes (Hospitalization, Other)
  Sender: FDA-Public Use
  Company Number: B0563645A

PATIENT
  Sex: Male

DRUGS (5)
  1. ARIXTRA [Suspect]
     Indication: THROMBOSIS PROPHYLAXIS
     Dosage: 2.5MG PER DAY
     Route: 058
     Dates: start: 20090218, end: 20090227
  2. ASPIRIN [Concomitant]
     Indication: ATRIOVENTRICULAR BLOCK COMPLETE
     Dosage: 100MG PER DAY
     Route: 048
     Dates: start: 20000101, end: 20090227
  3. FUROSEMIDE [Concomitant]
     Indication: HYPERTENSION
     Dosage: 20MG PER DAY
     Route: 048
     Dates: start: 20000101
  4. DIOVAN [Concomitant]
     Indication: HYPERTENSION
     Dosage: 80MG PER DAY
     Route: 048
     Dates: start: 20000101
  5. CORINAEL [Concomitant]
     Indication: HYPERTENSION
     Dosage: 40MG PER DAY
     Route: 048

REACTIONS (4)
  - ANAEMIA [None]
  - DUODENAL ULCER [None]
  - HAEMORRHAGE [None]
  - MELAENA [None]
